FAERS Safety Report 8957352 (Version 2)
Quarter: 2013Q1

REPORT INFORMATION
  Report Type: Spontaneous
  Country: FR (occurrence: FR)
  Receive Date: 20121211
  Receipt Date: 20130128
  Transmission Date: 20140127
  Serious: Yes (Other)
  Sender: FDA-Public Use
  Company Number: PHHY2012FR113047

PATIENT
  Age: 60 Year
  Sex: Female

DRUGS (10)
  1. ZOMETA [Suspect]
     Indication: METASTASES TO BONE
     Dosage: 4 MG, EVERY 3 WEEKS
     Route: 042
     Dates: start: 201201, end: 20121122
  2. PACLITAXEL [Suspect]
     Indication: BREAST CANCER
     Dosage: 6 MG/ML, 1 DF PER WEEK, EVERY 3 TO 4 WEEKS
     Route: 042
     Dates: start: 20120504, end: 20121113
  3. AVASTIN [Suspect]
     Indication: BREAST CANCER
     Dosage: 25 MG/ML, 500 MG EVERY 2 WEEKS
     Route: 042
     Dates: start: 20120504, end: 20121113
  4. DOLIPRANE [Concomitant]
     Dosage: UNK UKN, UNK
     Route: 048
  5. SPASFON [Concomitant]
     Dosage: UNK UKN, UNK
     Route: 048
  6. ZOPHREN [Concomitant]
     Dosage: UNK UKN, UNK
     Route: 048
  7. SEROPRAM [Concomitant]
     Dosage: 20 MG, QD
     Route: 048
     Dates: start: 2010
  8. STILNOX [Concomitant]
     Dosage: 1 DF, DQ
     Route: 048
     Dates: start: 2010
  9. MONOALGIC [Concomitant]
     Dosage: 300 MG, QD
     Route: 048
     Dates: start: 2011
  10. RANITIDINE [Concomitant]
     Dosage: 300 MG, BID
     Route: 048
     Dates: start: 2008

REACTIONS (2)
  - Macular oedema [Not Recovered/Not Resolved]
  - Visual acuity reduced [Not Recovered/Not Resolved]
